FAERS Safety Report 6754655-7 (Version None)
Quarter: 2010Q2

REPORT INFORMATION
  Report Type: 
  Country: None (occurrence: None)
  Receive Date: 20100603
  Receipt Date: 20100526
  Transmission Date: 20101027
  Serious: Yes (Other)
  Sender: FDA-Public Use
  Company Number: US-GILEAD-2010-0029436

PATIENT
  Age: 52 Year
  Sex: Male

DRUGS (17)
  1. VIREAD [Suspect]
     Indication: HIV INFECTION
  2. EFAVIRENZ [Suspect]
     Indication: HIV INFECTION
     Route: 048
  3. STAVUDINE [Suspect]
     Indication: HIV INFECTION
  4. DIDANOSINE [Suspect]
     Indication: HIV INFECTION
  5. INDINAVIR SULFATE [Suspect]
     Indication: HIV INFECTION
     Route: 048
  6. LAMIVUDINE [Suspect]
     Indication: HIV INFECTION
  7. SAQUINAVIR [Suspect]
     Indication: HIV INFECTION
  8. ABACAVIR SULFATE [Suspect]
     Indication: HIV INFECTION
  9. ZIDOVUDINE [Suspect]
     Indication: HIV INFECTION
  10. ETRAVIRINE [Suspect]
     Indication: HIV INFECTION
  11. RALTEGRAVIR [Suspect]
     Indication: HIV INFECTION
     Route: 048
  12. LOPINAVIR [Suspect]
     Indication: HIV INFECTION
  13. NELFINAVIR MESYLATE [Suspect]
     Indication: HIV INFECTION
  14. DARUNAVIR [Suspect]
     Indication: HIV INFECTION
  15. DELAVIRDINE MESYLATE [Suspect]
     Indication: HIV INFECTION
  16. RITONAVIR [Suspect]
     Indication: HIV INFECTION
  17. NEVIRAPINE [Suspect]
     Indication: HIV INFECTION

REACTIONS (5)
  - DIPLOPIA [None]
  - EYELID PTOSIS [None]
  - LIPODYSTROPHY ACQUIRED [None]
  - MITOCHONDRIAL TOXICITY [None]
  - PROGRESSIVE EXTERNAL OPHTHALMOPLEGIA [None]
